FAERS Safety Report 8438264-X (Version None)
Quarter: 2012Q2

REPORT INFORMATION
  Report Type: 
  Country: None (occurrence: None)
  Receive Date: 20120614
  Receipt Date: 20120612
  Transmission Date: 20120825
  Serious: Yes (Hospitalization)
  Sender: FDA-Public Use
  Company Number: PHHY2012JP050352

PATIENT
  Sex: Male

DRUGS (3)
  1. CISPLATIN [Suspect]
     Route: 042
  2. GIMERACIL/OTERACIL/TEGAFUR [Suspect]
     Route: 048
  3. DOCETAXEL [Suspect]

REACTIONS (7)
  - DECREASED APPETITE [None]
  - GASTRIC PERFORATION [None]
  - ABDOMINAL PAIN [None]
  - PERITONITIS [None]
  - SHOCK [None]
  - DIARRHOEA [None]
  - ASCITES [None]
